FAERS Safety Report 4596481-3 (Version None)
Quarter: 2005Q1

REPORT INFORMATION
  Report Type: 
  Country: None (occurrence: None)
  Receive Date: 20050228
  Receipt Date: 20050111
  Transmission Date: 20050727
  Serious: Yes (Hospitalization)
  Sender: FDA-Public Use
  Company Number: 2005029176

PATIENT
  Sex: Male

DRUGS (2)
  1. CELEBREX [Suspect]
     Indication: ILL-DEFINED DISORDER
     Dosage: ORAL
     Route: 048
  2. PRAVASTATIN SODIUM [Concomitant]

REACTIONS (5)
  - CARDIAC DISORDER [None]
  - DIARRHOEA [None]
  - EPISTAXIS [None]
  - HEART RATE DECREASED [None]
  - HYPERTENSION [None]
